FAERS Safety Report 11139615 (Version 2)
Quarter: 2016Q2

REPORT INFORMATION
  Report Type: Report from Study
  Country: GB (occurrence: GB)
  Receive Date: 20150527
  Receipt Date: 20160413
  Transmission Date: 20160815
  Serious: Yes (Hospitalization)
  Sender: FDA-Public Use
  Company Number: GB-BRISTOL-MYERS SQUIBB COMPANY-BMS-2015-031850

PATIENT
  Age: 28 Year
  Sex: Female

DRUGS (1)
  1. NIVOLUMAB [Suspect]
     Active Substance: NIVOLUMAB
     Indication: MALIGNANT MELANOMA
     Dosage: 25 MG, UNK
     Route: 042
     Dates: start: 20150512

REACTIONS (1)
  - Body temperature [Recovered/Resolved]

NARRATIVE: CASE EVENT DATE: 20150513
